FAERS Safety Report 9203558 (Version 1)
Quarter: 2013Q2

REPORT INFORMATION
  Report Type: Spontaneous
  Country: CN (occurrence: CN)
  Receive Date: 20130402
  Receipt Date: 20130402
  Transmission Date: 20140414
  Serious: Yes (Other)
  Sender: FDA-Public Use
  Company Number: PHHY2013CN028952

PATIENT
  Sex: 0

DRUGS (1)
  1. TELBIVUDINE [Suspect]
     Indication: CHRONIC HEPATITIS B
     Dosage: 600 MG, DAILY FOR 18 MONTHS

REACTIONS (1)
  - Gene mutation [Unknown]
